FAERS Safety Report 5799292-6 (Version None)
Quarter: 2008Q3

REPORT INFORMATION
  Report Type: 
  Country: None (occurrence: None)
  Receive Date: 20080702
  Receipt Date: 20080620
  Transmission Date: 20090109
  Serious: Yes (Other)
  Sender: FDA-Public Use
  Company Number: US-PFIZER INC-2008052147

PATIENT
  Sex: Female

DRUGS (5)
  1. XANAX [Suspect]
     Indication: ANXIETY
     Dosage: TEXT:1 MG UPTO TID
     Route: 048
  2. SYNTHROID [Concomitant]
     Indication: HYPOTHYROIDISM
     Dosage: DAILY DOSE:.05MG-TEXT:EVER MORNING
     Route: 048
  3. LAMICTAL [Concomitant]
     Indication: BIPOLAR DISORDER
     Route: 048
  4. TOPAMAX [Concomitant]
     Indication: MOOD SWINGS
     Route: 048
  5. ROZEREM [Concomitant]
     Indication: INSOMNIA
     Dosage: DAILY DOSE:8MG-TEXT:8 MILLIGRAM HS
     Route: 048
     Dates: start: 20080101

REACTIONS (2)
  - ACTIVITIES OF DAILY LIVING IMPAIRED [None]
  - OVERDOSE [None]
